FAERS Safety Report 21852066 (Version 1)
Quarter: 2023Q1

REPORT INFORMATION
  Report Type: Spontaneous
  Country: CA (occurrence: CA)
  Receive Date: 20230112
  Receipt Date: 20230112
  Transmission Date: 20230418
  Serious: No
  Sender: FDA-Public Use
  Company Number: CA-PADAGIS-2022PAD01266

PATIENT

DRUGS (8)
  1. CYCLOSPORINE [Suspect]
     Active Substance: CYCLOSPORINE
     Indication: Dermatitis atopic
     Dosage: 5 MG/KG PER DAY
     Route: 065
  2. PROTOPIC [Concomitant]
     Active Substance: TACROLIMUS
     Indication: Alopecia areata
     Dosage: UNK
     Route: 061
  3. FOLIC ACID [Concomitant]
     Active Substance: FOLIC ACID
     Indication: Dermatitis atopic
     Dosage: UNK
     Route: 065
  4. FOLIC ACID [Concomitant]
     Active Substance: FOLIC ACID
     Indication: Alopecia areata
  5. IRON [Concomitant]
     Active Substance: IRON
     Indication: Dermatitis atopic
     Dosage: UNK
     Route: 065
  6. IRON [Concomitant]
     Active Substance: IRON
     Indication: Alopecia areata
  7. VITAMIN D NOS [Concomitant]
     Active Substance: VITAMIN D NOS
     Indication: Dermatitis atopic
     Dosage: UNK
     Route: 065
  8. VITAMIN D NOS [Concomitant]
     Active Substance: VITAMIN D NOS
     Indication: Alopecia areata

REACTIONS (2)
  - Therapy partial responder [Unknown]
  - Product use in unapproved indication [Unknown]
